FAERS Safety Report 16430668 (Version 1)
Quarter: 2019Q3

REPORT INFORMATION
  Report Type: Spontaneous
  Country: US (occurrence: US)
  Receive Date: 20190613
  Receipt Date: 20190613
  Transmission Date: 20191004
  Serious: Yes (Hospitalization)
  Sender: FDA-Public Use
  Company Number: None

PATIENT
  Sex: Female

DRUGS (7)
  1. DICYCLOMINE, ELIQUIS, LOSARTAN POT [Concomitant]
  2. MONTELUKAST, POT CL MICRO [Concomitant]
  3. CARVEDILOL, CETIRIZINE, COLESTIPOL [Concomitant]
  4. SERTRALINE, SPIRONOLACT [Concomitant]
  5. REPATHA [Suspect]
     Active Substance: EVOLOCUMAB
     Indication: OBSTRUCTIVE AIRWAYS DISORDER
     Dosage: ?          OTHER FREQUENCY:Q 14 DAYS;?
     Route: 058
     Dates: start: 20190328
  6. VENTOLIN HFA, ZOLPIDEM [Concomitant]
  7. ALBUTEROL, ALPRAZOLAM, BUMETANIDE [Concomitant]

REACTIONS (1)
  - Hospitalisation [None]
